FAERS Safety Report 25387410 (Version 1)
Quarter: 2025Q2

REPORT INFORMATION
  Report Type: Spontaneous
  Country: US (occurrence: US)
  Receive Date: 20250602
  Receipt Date: 20250602
  Transmission Date: 20250717
  Serious: No
  Sender: ABBVIE
  Company Number: US-ABBVIE-6297921

PATIENT

DRUGS (1)
  1. RISANKIZUMAB [Suspect]
     Active Substance: RISANKIZUMAB
     Indication: Psoriasis
     Route: 058

REACTIONS (7)
  - Alopecia [Unknown]
  - Drug ineffective [Unknown]
  - Skin burning sensation [Unknown]
  - Psoriasis [Unknown]
  - Memory impairment [Unknown]
  - Scab [Unknown]
  - Poor quality product administered [Unknown]
